FAERS Safety Report 11078630 (Version 1)
Quarter: 2015Q2

REPORT INFORMATION
  Report Type: Report from Study
  Country: US (occurrence: None)
  Receive Date: 20150428
  Receipt Date: 20150428
  Transmission Date: 20150821
  Serious: Yes (Hospitalization)
  Sender: FDA-Public Use
  Company Number: 2015SGN00603

PATIENT
  Age: 54 Year
  Sex: Male
  Weight: 73.9 kg

DRUGS (22)
  1. FOLATE (FOLIC ACID) [Concomitant]
  2. DACARBAZINE. [Suspect]
     Active Substance: DACARBAZINE
     Indication: HODGKIN^S DISEASE
     Dosage: 375 MG/M2, QCYCLE, INTRAVENOUS
     Route: 042
     Dates: start: 20150307, end: 20150307
  3. VINBLASTINE [Suspect]
     Active Substance: VINBLASTINE
     Indication: HODGKIN^S DISEASE
     Dosage: 6 MG/M2, QCYCLE, INTRAVENOUS
     Route: 042
     Dates: start: 20150307, end: 20150307
  4. DOXORUBICIN HYDROCHLORIDE. [Suspect]
     Active Substance: DOXORUBICIN HYDROCHLORIDE
     Indication: HODGKIN^S DISEASE
     Dosage: 25 MG/M2, QCYCLE, INTRAVENOUS
     Route: 042
     Dates: start: 20150307, end: 20150307
  5. RITONAVIR. [Concomitant]
     Active Substance: RITONAVIR
  6. DACARBAZINE. [Suspect]
     Active Substance: DACARBAZINE
     Indication: LYMPHOMA AIDS RELATED
     Dosage: 375 MG/M2, QCYCLE, INTRAVENOUS
     Route: 042
     Dates: start: 20150307, end: 20150307
  7. ATENOLOL. [Concomitant]
     Active Substance: ATENOLOL
  8. RALTEGRAVIR [Concomitant]
     Active Substance: RALTEGRAVIR
  9. BRENTUXIMAB VEDOTIN [Suspect]
     Active Substance: BRENTUXIMAB VEDOTIN
     Indication: HODGKIN^S DISEASE
     Dosage: 1.2 MG/KG, QCYCLE, INTRAVENOUS
     Route: 042
     Dates: start: 20150307, end: 20150307
  10. COMPAZINE (PROCLORPERAZINE EDISYLATE) [Concomitant]
  11. BACTRIM [Concomitant]
     Active Substance: SULFAMETHOXAZOLE\TRIMETHOPRIM
  12. BRENTUXIMAB VEDOTIN [Suspect]
     Active Substance: BRENTUXIMAB VEDOTIN
     Indication: LYMPHOMA AIDS RELATED
     Dosage: 1.2 MG/KG, QCYCLE, INTRAVENOUS
     Route: 042
     Dates: start: 20150307, end: 20150307
  13. VINBLASTINE [Suspect]
     Active Substance: VINBLASTINE
     Indication: LYMPHOMA AIDS RELATED
     Dosage: 6 MG/M2, QCYCLE, INTRAVENOUS
     Route: 042
     Dates: start: 20150307, end: 20150307
  14. DOXORUBICIN HYDROCHLORIDE. [Suspect]
     Active Substance: DOXORUBICIN HYDROCHLORIDE
     Indication: LYMPHOMA AIDS RELATED
     Dosage: 25 MG/M2, QCYCLE, INTRAVENOUS
     Route: 042
     Dates: start: 20150307, end: 20150307
  15. CIPROFLOXACIN. [Concomitant]
     Active Substance: CIPROFLOXACIN
  16. ATIVAN [Concomitant]
     Active Substance: LORAZEPAM
  17. VALACYLOVIR (VALACICLOVIR HYDROCHLORIDE) [Concomitant]
  18. ASPIRIN (ACETYLSALICYLIC ACID) [Concomitant]
     Active Substance: ASPIRIN
  19. DARUNAVIR [Concomitant]
     Active Substance: DARUNAVIR
  20. AZITHROMYCIN [Concomitant]
     Active Substance: AZITHROMYCIN ANHYDROUS
  21. ZOFRAN (ONDANSETRON) [Concomitant]
  22. TENOFOVIR [Concomitant]
     Active Substance: TENOFOVIR

REACTIONS (6)
  - Enterocolitis [None]
  - Dyspnoea [None]
  - Blood pressure decreased [None]
  - Oesophagitis [None]
  - Febrile neutropenia [None]
  - Oesophageal candidiasis [None]

NARRATIVE: CASE EVENT DATE: 20150313
